FAERS Safety Report 11994919 (Version 3)
Quarter: 2019Q1

REPORT INFORMATION
  Report Type: Spontaneous
  Country: US (occurrence: US)
  Receive Date: 20160203
  Receipt Date: 20190111
  Transmission Date: 20190417
  Serious: Yes (Hospitalization, Other)
  Sender: FDA-Public Use
  Company Number: US-UCBSA-2014009010

PATIENT
  Sex: Male
  Weight: 116 kg

DRUGS (2)
  1. KEPPRA XR [Suspect]
     Active Substance: LEVETIRACETAM
     Indication: PARTIAL SEIZURES
     Dosage: 1000 MG, ONCE DAILY (QD)
     Route: 048
     Dates: start: 2013
  2. PLAVIX [Concomitant]
     Active Substance: CLOPIDOGREL BISULFATE
     Indication: CORONARY ARTERY OCCLUSION
     Dosage: UNK

REACTIONS (8)
  - Insomnia [Recovered/Resolved]
  - Stress [Recovered/Resolved]
  - Impaired work ability [Unknown]
  - Malaise [Not Recovered/Not Resolved]
  - Arthropathy [Unknown]
  - Coronary artery occlusion [Not Recovered/Not Resolved]
  - Seizure [Not Recovered/Not Resolved]
  - Dizziness [Recovered/Resolved]

NARRATIVE: CASE EVENT DATE: 2013
